FAERS Safety Report 24447813 (Version 3)
Quarter: 2024Q4

REPORT INFORMATION
  Report Type: Spontaneous
  Country: HU (occurrence: HU)
  Receive Date: 20241016
  Receipt Date: 20241030
  Transmission Date: 20250114
  Serious: Yes (Hospitalization, Other)
  Sender: NOVARTIS
  Company Number: HU-002147023-NVSC2024HU200552

PATIENT
  Age: 54 Year
  Sex: Male

DRUGS (8)
  1. ENTRESTO [Suspect]
     Active Substance: SACUBITRIL\VALSARTAN
     Indication: Ejection fraction decreased
     Dosage: UNK, 97/103 MG
     Route: 065
     Dates: start: 2022
  2. ENTRESTO [Suspect]
     Active Substance: SACUBITRIL\VALSARTAN
     Indication: Cardiac failure
     Dosage: UNK, 24/26 MG
     Route: 065
     Dates: start: 202408
  3. ENTRESTO [Suspect]
     Active Substance: SACUBITRIL\VALSARTAN
     Dosage: UNK, 49/51 MG
     Route: 065
     Dates: start: 202410
  4. BISOPROLOL [Concomitant]
     Active Substance: BISOPROLOL\BISOPROLOL FUMARATE
     Indication: Ejection fraction
     Dosage: 10 MG
     Route: 065
     Dates: start: 2022
  5. EPLERENONE [Concomitant]
     Active Substance: EPLERENONE
     Indication: Ejection fraction
     Dosage: 50 MG
     Route: 065
     Dates: start: 2022
  6. DAPAGLIFLOZIN [Concomitant]
     Active Substance: DAPAGLIFLOZIN
     Indication: Ejection fraction
     Dosage: 10 MG
     Route: 065
     Dates: start: 2022
  7. FUROSEMIDE [Concomitant]
     Active Substance: FUROSEMIDE
     Indication: Ejection fraction
     Dosage: 40 MG, 1-2X WEEKLY
     Route: 065
     Dates: start: 2022
  8. METOPROLOL [Concomitant]
     Active Substance: METOPROLOL
     Indication: Product used for unknown indication
     Dosage: 50 MG
     Route: 065
     Dates: start: 202410

REACTIONS (6)
  - Hypotension [Recovering/Resolving]
  - Cardiac failure chronic [Recovering/Resolving]
  - Glomerular filtration rate decreased [Recovering/Resolving]
  - Pleural effusion [Unknown]
  - Hepatomegaly [Unknown]
  - Ascites [Unknown]

NARRATIVE: CASE EVENT DATE: 20240601
